FAERS Safety Report 5138507-4 (Version None)
Quarter: 2006Q4

REPORT INFORMATION
  Report Type: 
  Country: None (occurrence: None)
  Receive Date: 20061030
  Receipt Date: 20060306
  Transmission Date: 20070319
  Serious: No
  Sender: FDA-Public Use
  Company Number: US-GLAXOSMITHKLINE-A0596316A

PATIENT
  Age: 83 Year
  Sex: Male

DRUGS (11)
  1. ADVAIR HFA [Suspect]
     Indication: ASTHMA
     Dosage: 1BLS TWICE PER DAY
     Route: 055
  2. DIGEL [Concomitant]
  3. LISINOPRIL [Concomitant]
  4. NEXIUM [Concomitant]
  5. ASPIRIN [Concomitant]
  6. ATENOL [Concomitant]
  7. LASIX [Concomitant]
  8. SEREVENT [Concomitant]
  9. AZMACORT [Concomitant]
  10. SEREVENT [Concomitant]
  11. ALBUTEROL [Concomitant]

REACTIONS (2)
  - DRUG INEFFECTIVE [None]
  - DRY MOUTH [None]
